FAERS Safety Report 13461682 (Version 1)
Quarter: 2017Q2

REPORT INFORMATION
  Report Type: Spontaneous
  Country: CN (occurrence: CN)
  Receive Date: 20170420
  Receipt Date: 20170420
  Transmission Date: 20170830
  Serious: Yes (Life-Threatening, Hospitalization, Other)
  Sender: FDA-Public Use
  Company Number: CN-GLAXOSMITHKLINE-CN2017056015

PATIENT
  Age: 37 Year
  Sex: Male

DRUGS (1)
  1. PROPAFENONE. [Suspect]
     Active Substance: PROPAFENONE
     Indication: PRODUCT USED FOR UNKNOWN INDICATION

REACTIONS (9)
  - Cardiac arrest [Recovered/Resolved]
  - Altered state of consciousness [Recovered/Resolved]
  - Overdose [Recovered/Resolved]
  - Muscle twitching [Recovered/Resolved]
  - Toxicity to various agents [Recovered/Resolved]
  - Rhythm idioventricular [Recovered/Resolved]
  - Suicide attempt [Recovered/Resolved]
  - Hypocalcaemia [Recovered/Resolved]
  - Hyperkalaemia [Recovered/Resolved]
